FAERS Safety Report 15235728 (Version 1)
Quarter: 2018Q3

REPORT INFORMATION
  Report Type: Report from Study
  Country: PH (occurrence: PH)
  Receive Date: 20180803
  Receipt Date: 20180803
  Transmission Date: 20181010
  Serious: Yes (Death, Hospitalization)
  Sender: FDA-Public Use
  Company Number: PH-OTSUKA-2018_027367

PATIENT
  Sex: Male

DRUGS (1)
  1. CILOSTAZOL. [Suspect]
     Active Substance: CILOSTAZOL
     Indication: ANGIOPATHY
     Dosage: 100 MG, UNK
     Route: 065
     Dates: start: 201710, end: 201805

REACTIONS (2)
  - Internal haemorrhage [Unknown]
  - Pneumonia [Fatal]
